FAERS Safety Report 7085439-0 (Version None)
Quarter: 2010Q4

REPORT INFORMATION
  Report Type: 
  Country: None (occurrence: None)
  Receive Date: 20101105
  Receipt Date: 20101029
  Transmission Date: 20110411
  Serious: Yes (Other)
  Sender: FDA-Public Use
  Company Number: US-PFIZER INC-2010138749

PATIENT
  Sex: Female

DRUGS (6)
  1. GEODON [Suspect]
     Dosage: 80 MG, 2X/DAY
  2. GEODON [Suspect]
     Dosage: 60 MG, 2X/DAY
  3. XANAX [Suspect]
     Dosage: 9MG
  4. XANAX [Suspect]
     Dosage: 2MG
  5. XANAX XR [Suspect]
     Dosage: 2.5MG
  6. REMERON [Suspect]
     Dosage: 90MG

REACTIONS (3)
  - DYSARTHRIA [None]
  - DYSKINESIA [None]
  - TARDIVE DYSKINESIA [None]
